FAERS Safety Report 25518739 (Version 1)
Quarter: 2025Q3

REPORT INFORMATION
  Report Type: Spontaneous
  Country: US (occurrence: US)
  Receive Date: 20250704
  Receipt Date: 20250704
  Transmission Date: 20251021
  Serious: No
  Sender: NOVITIUM PHARMA
  Company Number: US-NOVITIUMPHARMA-2025USNVP01533

PATIENT
  Age: 28 Year
  Sex: Male
  Weight: 105 kg

DRUGS (1)
  1. MEGESTROL ACETATE [Suspect]
     Active Substance: MEGESTROL ACETATE
     Indication: Hyperphagia
     Route: 048
     Dates: start: 20250626, end: 20250626

REACTIONS (3)
  - Abdominal discomfort [Unknown]
  - Poor quality product administered [Unknown]
  - Product taste abnormal [Unknown]
